FAERS Safety Report 13847242 (Version 3)
Quarter: 2017Q4

REPORT INFORMATION
  Report Type: Spontaneous
  Country: DK (occurrence: DK)
  Receive Date: 20170808
  Receipt Date: 20171006
  Transmission Date: 20180320
  Serious: Yes (Hospitalization)
  Sender: FDA-Public Use
  Company Number: DK-ALLERGAN-1733452US

PATIENT
  Age: 78 Year

DRUGS (1)
  1. BOTOX [Suspect]
     Active Substance: ONABOTULINUMTOXINA
     Indication: HYPERTONIC BLADDER
     Dosage: BETWEEN 100 TO 200 UNITS, SINGLE
     Route: 043

REACTIONS (1)
  - Post procedural haemorrhage [Recovered/Resolved]
